FAERS Safety Report 10924508 (Version 2)
Quarter: 2015Q2

REPORT INFORMATION
  Report Type: Spontaneous
  Country: US (occurrence: US)
  Receive Date: 20150318
  Receipt Date: 20150524
  Transmission Date: 20150821
  Serious: No
  Sender: FDA-Public Use
  Company Number: US-JNJFOC-20140608365

PATIENT
  Age: 80 Year
  Sex: Female

DRUGS (2)
  1. BETAMETHASONE [Concomitant]
     Active Substance: BETAMETHASONE
     Indication: SEBORRHOEA
     Route: 065
  2. KETOCONAZOLE 2% [Suspect]
     Active Substance: KETOCONAZOLE
     Indication: SEBORRHOEA
     Dosage: USE THREE TIMES??WEEKLY IN THE WINTER AND TWO DAYS??WEEKLY IN THE SUMMER
     Route: 061
     Dates: start: 201406

REACTIONS (3)
  - Medication error [Not Recovered/Not Resolved]
  - Pruritus [Not Recovered/Not Resolved]
  - Alopecia [Not Recovered/Not Resolved]

NARRATIVE: CASE EVENT DATE: 201406
